APPROVED DRUG PRODUCT: LOPERAMIDE HYDROCHLORIDE
Active Ingredient: LOPERAMIDE HYDROCHLORIDE
Strength: 1MG/5ML
Dosage Form/Route: SOLUTION;ORAL
Application: A073062 | Product #001
Applicant: WATSON LABORATORIES INC
Approved: May 28, 1993 | RLD: No | RS: No | Type: DISCN